FAERS Safety Report 13201592 (Version 1)
Quarter: 2017Q1

REPORT INFORMATION
  Report Type: Spontaneous
  Country: US (occurrence: US)
  Receive Date: 20170208
  Receipt Date: 20170208
  Transmission Date: 20170428
  Serious: No
  Sender: FDA-Public Use
  Company Number: US-AMGEN-USASP2016069329

PATIENT

DRUGS (9)
  1. APO-TAMOX [Concomitant]
     Active Substance: TAMOXIFEN
     Dosage: UNK
     Dates: start: 20151005
  2. TAMOFEN [Concomitant]
     Active Substance: TAMOXIFEN CITRATE
     Dosage: UNK
     Dates: start: 20151005
  3. NOLVADEX                           /00388701/ [Concomitant]
     Active Substance: TAMOXIFEN CITRATE
     Dosage: UNK
     Dates: start: 20151005
  4. 5-FU                               /00098801/ [Concomitant]
     Active Substance: FLUOROURACIL
     Indication: INVASIVE DUCTAL BREAST CARCINOMA
     Dosage: UNK
     Dates: start: 20150531
  5. TAXOTERE [Concomitant]
     Active Substance: DOCETAXEL
     Indication: INVASIVE DUCTAL BREAST CARCINOMA
     Dosage: UNK
     Dates: start: 20150805
  6. TAMONE [Concomitant]
     Dosage: UNK
     Dates: start: 20151005
  7. ELLENCE [Concomitant]
     Active Substance: EPIRUBICIN HYDROCHLORIDE
     Indication: INVASIVE DUCTAL BREAST CARCINOMA
     Dosage: UNK
     Dates: start: 20150531
  8. NEULASTA [Suspect]
     Active Substance: PEGFILGRASTIM
     Indication: PRODUCT USED FOR UNKNOWN INDICATION
     Dosage: UNK UNK, UNK
     Route: 065
  9. CYTOXAN [Concomitant]
     Active Substance: CYCLOPHOSPHAMIDE
     Indication: INVASIVE DUCTAL BREAST CARCINOMA
     Dosage: UNK
     Dates: start: 20150531

REACTIONS (5)
  - Scar [Unknown]
  - Nervous system disorder [Unknown]
  - Paraesthesia [Unknown]
  - Pain [Unknown]
  - Asthenia [Unknown]
